FAERS Safety Report 17959607 (Version 2)
Quarter: 2022Q1

REPORT INFORMATION
  Report Type: Spontaneous
  Country: CA (occurrence: None)
  Receive Date: 20200630
  Receipt Date: 20220208
  Transmission Date: 20220423
  Serious: Yes (Other)
  Sender: FDA-Public Use
  Company Number: CA-ROCHE-2633313

PATIENT
  Age: 66 Year
  Sex: Female

DRUGS (2)
  1. RITUXAN [Suspect]
     Active Substance: RITUXIMAB
     Indication: Asthma
     Route: 042
     Dates: start: 20190919, end: 20200828
  2. RITUXAN [Suspect]
     Active Substance: RITUXIMAB
     Indication: Vasculitis

REACTIONS (3)
  - Skin ulcer [Not Recovered/Not Resolved]
  - Intentional product use issue [Unknown]
  - Off label use [Unknown]

NARRATIVE: CASE EVENT DATE: 20211201
